FAERS Safety Report 6311878-9 (Version None)
Quarter: 2009Q3

REPORT INFORMATION
  Report Type: 
  Country: None (occurrence: None)
  Receive Date: 20090817
  Receipt Date: 20090806
  Transmission Date: 20100115
  Serious: Yes (Other)
  Sender: FDA-Public Use
  Company Number: NZ-MERCK-0908NZL00002

PATIENT

DRUGS (1)
  1. FOSAMAX [Suspect]
     Route: 065

REACTIONS (1)
  - OSTEONECROSIS [None]
